FAERS Safety Report 15588569 (Version 14)
Quarter: 2021Q3

REPORT INFORMATION
  Report Type: Spontaneous
  Country: GB (occurrence: GB)
  Receive Date: 20181105
  Receipt Date: 20210921
  Transmission Date: 20211014
  Serious: Yes (Death, Life-Threatening, Hospitalization, Other)
  Sender: FDA-Public Use
  Company Number: GB-AUROBINDO-AUR-APL-2018-053650

PATIENT
  Age: 47 Year
  Sex: Female

DRUGS (31)
  1. PRAVASTATIN. [Suspect]
     Active Substance: PRAVASTATIN
     Dosage: 40 MG, QD M QHS
     Route: 048
  2. EZETIMIBE. [Suspect]
     Active Substance: EZETIMIBE
     Indication: BLOOD CHOLESTEROL INCREASED
     Dosage: 10 MILLIGRAM, QD, (10 MG, QD)
     Route: 048
     Dates: end: 20180928
  3. CLOZAPINE. [Suspect]
     Active Substance: CLOZAPINE
     Indication: PRODUCT USED FOR UNKNOWN INDICATION
     Dosage: 200 MG, QD
     Route: 048
     Dates: start: 20170317, end: 20180928
  4. PRAVASTATIN. [Suspect]
     Active Substance: PRAVASTATIN
     Dosage: 40 MILLIGRAM, QD (40 MG, QD PM QHS)
     Route: 048
  5. LOSARTAN FILM?COATED TABLETS [Suspect]
     Active Substance: LOSARTAN
     Indication: HYPERTENSION
     Dosage: 100 MILLIGRAM, ONCE A DAY
     Route: 048
     Dates: end: 20180928
  6. HUMALOG MIX50/50 [Suspect]
     Active Substance: INSULIN LISPRO
     Dosage: 360 INTERNATIONAL UNIT, ONCE A DAY, 120 IU, TID
     Route: 048
     Dates: end: 20180928
  7. CLOZAPINE. [Suspect]
     Active Substance: CLOZAPINE
     Indication: SCHIZOPHRENIA
     Dosage: UNK
  8. PRAVASTATIN. [Suspect]
     Active Substance: PRAVASTATIN
     Indication: BLOOD CHOLESTEROL INCREASED
     Dosage: 40 MILLIGRAM, QD (40 MG, PM, QHS, UNIT DOSE: 40 MG)
     Route: 048
  9. PRAVASTATIN. [Suspect]
     Active Substance: PRAVASTATIN
     Dosage: 40 MILLIGRAM, QD (40 MG, PM, QHS, UNIT DOSE: 40 MG)
     Route: 048
  10. HUMALOG MIX50/50 [Suspect]
     Active Substance: INSULIN LISPRO
     Dosage: 60 INTERNATIONAL UNIT, 3 TIMES A DAY
     Route: 048
     Dates: end: 20180928
  11. AMLODIPINE [Suspect]
     Active Substance: AMLODIPINE BESYLATE
     Indication: HYPERTENSION
     Dosage: 100 MILLIGRAM, ONCE A DAY
     Route: 048
     Dates: start: 20180928, end: 20180928
  12. PRAVASTATIN TABLET [Suspect]
     Active Substance: PRAVASTATIN
     Indication: BLOOD CHOLESTEROL INCREASED
     Dosage: 40 MILLIGRAM
     Route: 048
  13. CLOZARIL [Suspect]
     Active Substance: CLOZAPINE
     Indication: SCHIZOPHRENIA
     Dosage: 200 MILLIGRAM, QD, (200 MG, PM, 1 DAY)
     Route: 048
     Dates: start: 20170317, end: 20180928
  14. HUMALOG MIX50/50 [Suspect]
     Active Substance: INSULIN LISPRO
     Dosage: 540 INTERNATIONAL UNIT, ONCE A DAY
     Route: 048
     Dates: end: 20180928
  15. EZETIMIBE TABLETS [Suspect]
     Active Substance: EZETIMIBE
     Indication: BLOOD CHOLESTEROL INCREASED
     Dosage: 10 MILLIGRAM, DAILY
     Route: 048
     Dates: end: 20180928
  16. PRAVASTATIN. [Suspect]
     Active Substance: PRAVASTATIN
     Dosage: 40 MG, QD
     Route: 048
  17. LOSARTAN FILM?COATED TABLETS [Suspect]
     Active Substance: LOSARTAN
     Indication: SCHIZOPHRENIA
     Dosage: 200 MILLIGRAM, ONCE A DAY(200 MILLIGRAM, OD, (EVERY 1 DAY) )
     Route: 048
     Dates: start: 20170317, end: 20180928
  18. AMLODIPINE [Suspect]
     Active Substance: AMLODIPINE BESYLATE
     Indication: HYPERTENSION
     Dosage: 100 MILLIGRAM, QD
     Route: 048
     Dates: start: 20180928, end: 20180928
  19. PRAVASTATIN TABLET [Suspect]
     Active Substance: PRAVASTATIN
     Dosage: 50 MILLIGRAM, ONCE A DAY(50 MILLIGRAM, QD (SODIUM SALT OF PRAVASTATIN) )
     Route: 048
     Dates: start: 201709
  20. HUMALOG MIX50/50 [Suspect]
     Active Substance: INSULIN LISPRO
     Indication: DIABETES MELLITUS
     Dosage: 120 INTERNATIONAL UNIT, 3 TIMES A DAY
     Route: 048
     Dates: end: 20180928
  21. HUMALOG MIX50/50 [Suspect]
     Active Substance: INSULIN LISPRO
     Dosage: 180 INTERNATIONAL UNIT, ONCE A DAY (60 IU, TID (180 INTERNATIONAL UNIT, QD))
     Route: 048
     Dates: end: 20180928
  22. PRAVASTATIN. [Suspect]
     Active Substance: PRAVASTATIN
     Dosage: 40 MG, QD M QHS
     Route: 048
  23. CLOZARIL [Suspect]
     Active Substance: CLOZAPINE
     Indication: BLOOD CHOLESTEROL INCREASED
     Dosage: 58000 MILLIGRAM
     Route: 065
  24. FELODIPINE. [Suspect]
     Active Substance: FELODIPINE
     Indication: HYPERTENSION
     Dosage: 10 MILLIGRAM, QD, (10 MG QD)
     Route: 048
     Dates: end: 20180928
  25. PRAVASTATIN TABLET [Suspect]
     Active Substance: PRAVASTATIN
     Indication: DEPRESSION
     Dosage: 40 MILLIGRAM, ONCE A DAY
     Route: 048
  26. SERTRALINE [Suspect]
     Active Substance: SERTRALINE HYDROCHLORIDE
     Indication: DEPRESSION
     Dosage: 50 MILLIGRAM, DAILY (AM )
     Route: 048
     Dates: start: 201709, end: 20180928
  27. PRAVASTATIN. [Suspect]
     Active Substance: PRAVASTATIN
     Dosage: 40 MILLIGRAM, QD (40 MG, QD PM QHS)
     Route: 048
  28. PRAVASTATIN. [Suspect]
     Active Substance: PRAVASTATIN
     Dosage: 40 MG, QD
     Route: 048
  29. CLOZARIL [Suspect]
     Active Substance: CLOZAPINE
     Dosage: 10 MILLIGRAM, ONCE A DAY
     Route: 048
     Dates: start: 20180928
  30. LANSOPRAZOLE. [Suspect]
     Active Substance: LANSOPRAZOLE
     Indication: GASTROOESOPHAGEAL REFLUX DISEASE
     Dosage: 30 MILLIGRAM, ONCE A DAY
     Route: 065
  31. LANSOPRAZOLE. [Suspect]
     Active Substance: LANSOPRAZOLE
     Indication: GASTROOESOPHAGEAL REFLUX DISEASE
     Dosage: 30 MG, QD
     Route: 065
     Dates: end: 20180928

REACTIONS (4)
  - Pneumonia [Fatal]
  - Multiple organ dysfunction syndrome [Fatal]
  - Loss of consciousness [Fatal]
  - Incorrect route of product administration [Fatal]

NARRATIVE: CASE EVENT DATE: 2018
